FAERS Safety Report 7612327-0 (Version None)
Quarter: 2011Q3

REPORT INFORMATION
  Report Type: 
  Country: None (occurrence: None)
  Receive Date: 20110715
  Receipt Date: 20110706
  Transmission Date: 20111222
  Serious: Yes (Other)
  Sender: FDA-Public Use
  Company Number: GB-ASTRAZENECA-2011SE40479

PATIENT

DRUGS (3)
  1. DIAMORPHINE [Suspect]
     Indication: ANALGESIC THERAPY
     Route: 037
  2. LIORESAL [Suspect]
     Indication: MUSCLE SPASTICITY
     Route: 037
  3. BUPIVACAINE HCL [Suspect]
     Indication: ANALGESIC THERAPY
     Route: 037

REACTIONS (1)
  - GRANULOMA [None]
